FAERS Safety Report 16763735 (Version 2)
Quarter: 2020Q2

REPORT INFORMATION
  Report Type: Spontaneous
  Country: CA (occurrence: CA)
  Receive Date: 20190902
  Receipt Date: 20200408
  Transmission Date: 20200713
  Serious: Yes (Other)
  Sender: FDA-Public Use
  Company Number: CA-PFIZER INC-2019373537

PATIENT
  Age: 56 Year
  Sex: Female

DRUGS (1)
  1. ZOLEDRONIC ACID [Suspect]
     Active Substance: ZOLEDRONIC ACID
     Indication: OSTEOPOROSIS
     Dosage: UNK (1 EVERY 1 YEARS)
     Route: 041

REACTIONS (3)
  - Fibula fracture [Unknown]
  - Lower limb fracture [Unknown]
  - Tibia fracture [Unknown]
